FAERS Safety Report 25373172 (Version 1)
Quarter: 2025Q2

REPORT INFORMATION
  Report Type: Spontaneous
  Country: US (occurrence: US)
  Receive Date: 20250529
  Receipt Date: 20250529
  Transmission Date: 20250717
  Serious: No
  Sender: CIPLA
  Company Number: US-CIPLA LTD.-2024US09602

PATIENT

DRUGS (5)
  1. ALBUTEROL [Suspect]
     Active Substance: ALBUTEROL
     Indication: Asthma
     Dates: start: 202407
  2. ALBUTEROL [Suspect]
     Active Substance: ALBUTEROL
     Dates: start: 202407
  3. ALBUTEROL [Suspect]
     Active Substance: ALBUTEROL
     Dates: start: 2024
  4. ALBUTEROL [Suspect]
     Active Substance: ALBUTEROL
     Dates: start: 202408
  5. ALBUTEROL SULFATE [Concomitant]
     Active Substance: ALBUTEROL SULFATE
     Indication: Asthma
     Route: 065

REACTIONS (6)
  - Drug dose omission by device [Unknown]
  - Device delivery system issue [Unknown]
  - Product outer packaging issue [Unknown]
  - Device physical property issue [Unknown]
  - Product container seal issue [Unknown]
  - Device issue [Unknown]

NARRATIVE: CASE EVENT DATE: 20240101
